FAERS Safety Report 8059103-5 (Version None)
Quarter: 2012Q1

REPORT INFORMATION
  Report Type: 
  Country: None (occurrence: None)
  Receive Date: 20120119
  Receipt Date: 20120119
  Transmission Date: 20120608
  Serious: No
  Sender: FDA-Public Use
  Company Number: None

PATIENT
  Age: 69 Year
  Sex: Female
  Weight: 65.7716 kg

DRUGS (1)
  1. GABAPENTIN [Suspect]
     Indication: DEPRESSION
     Dosage: 600 MG - DOWN TO 200/ EVENING CAPSUL FOR 3WKS HAD TO STOP

REACTIONS (22)
  - FATIGUE [None]
  - CONFUSIONAL STATE [None]
  - VISION BLURRED [None]
  - DECREASED APPETITE [None]
  - MEMORY IMPAIRMENT [None]
  - NERVOUSNESS [None]
  - CHEST DISCOMFORT [None]
  - CONSTIPATION [None]
  - HYPOAESTHESIA [None]
  - COMMUNICATION DISORDER [None]
  - COORDINATION ABNORMAL [None]
  - FLUID RETENTION [None]
  - GASTROOESOPHAGEAL REFLUX DISEASE [None]
  - BALANCE DISORDER [None]
  - ANXIETY [None]
  - ASTHMA [None]
  - DISTURBANCE IN ATTENTION [None]
  - HYPOTENSION [None]
  - CONDITION AGGRAVATED [None]
  - DRY MOUTH [None]
  - DYSPEPSIA [None]
  - HOT FLUSH [None]
